FAERS Safety Report 5234789-9 (Version None)
Quarter: 2007Q1

REPORT INFORMATION
  Report Type: 
  Country: None (occurrence: None)
  Receive Date: 20070209
  Receipt Date: 20070130
  Transmission Date: 20070707
  Serious: No
  Sender: FDA-Public Use
  Company Number: BR-PFIZER INC-2006153647

PATIENT
  Sex: Male

DRUGS (1)
  1. GEODON [Suspect]
     Indication: ANXIETY DISORDER
     Route: 048

REACTIONS (1)
  - NO ADVERSE EFFECT [None]
